FAERS Safety Report 25141266 (Version 1)
Quarter: 2025Q1

REPORT INFORMATION
  Report Type: Spontaneous
  Country: FR (occurrence: FR)
  Receive Date: 20250331
  Receipt Date: 20250331
  Transmission Date: 20250409
  Serious: Yes (Hospitalization)
  Sender: TEVA
  Company Number: None

PATIENT
  Age: 46 Year
  Sex: Male

DRUGS (3)
  1. FLUOROURACIL [Suspect]
     Active Substance: FLUOROURACIL
     Indication: Oesophageal adenocarcinoma
     Route: 042
     Dates: start: 20240513, end: 202407
  2. FLUOROURACIL [Suspect]
     Active Substance: FLUOROURACIL
     Indication: Oesophageal adenocarcinoma
     Route: 042
     Dates: start: 20250217, end: 20250224
  3. IMFINZI [Suspect]
     Active Substance: DURVALUMAB
     Indication: Oesophageal adenocarcinoma
     Route: 042
     Dates: start: 20250217, end: 20250224

REACTIONS (1)
  - Troponin increased [Recovered/Resolved]

NARRATIVE: CASE EVENT DATE: 20250221
